FAERS Safety Report 7629864-5 (Version None)
Quarter: 2011Q3

REPORT INFORMATION
  Report Type: 
  Country: None (occurrence: None)
  Receive Date: 20110722
  Receipt Date: 20110713
  Transmission Date: 20111222
  Serious: Yes (Other)
  Sender: FDA-Public Use
  Company Number: US-JNJFOC-20110707082

PATIENT
  Sex: Male
  Weight: 23.3 kg

DRUGS (2)
  1. REMICADE [Suspect]
     Indication: INFLAMMATORY BOWEL DISEASE
     Route: 042
     Dates: start: 20100722
  2. REMICADE [Suspect]
     Route: 042
     Dates: start: 20060901

REACTIONS (1)
  - ABSCESS [None]
